FAERS Safety Report 22341057 (Version 1)
Quarter: 2023Q2

REPORT INFORMATION
  Report Type: Spontaneous
  Country: US (occurrence: None)
  Receive Date: 20230518
  Receipt Date: 20230518
  Transmission Date: 20230721
  Serious: No
  Sender: FDA-Public Use
  Company Number: None

PATIENT
  Sex: Female

DRUGS (1)
  1. CYCLOSPORINE MODIFIED [Suspect]
     Active Substance: CYCLOSPORINE
     Dosage: FREQUENCY : DAILY;?
     Route: 048

REACTIONS (3)
  - Chest pain [None]
  - Palpitations [None]
  - Dizziness [None]
